FAERS Safety Report 12501395 (Version 2)
Quarter: 2016Q2

REPORT INFORMATION
  Report Type: Spontaneous
  Country: US (occurrence: US)
  Receive Date: 20160627
  Receipt Date: 20160628
  Transmission Date: 20160815
  Serious: Yes (Hospitalization)
  Sender: FDA-Public Use
  Company Number: US-MALLINCKRODT-T201601329

PATIENT
  Sex: Male

DRUGS (1)
  1. GABLOFEN [Suspect]
     Active Substance: BACLOFEN
     Indication: MUSCLE SPASTICITY
     Dosage: ^700 SOMETHING MCG/DAY^
     Route: 037

REACTIONS (5)
  - Muscle spasticity [Unknown]
  - Infection [Unknown]
  - Nephrolithiasis [Unknown]
  - Screaming [Unknown]
  - Pyrexia [Unknown]
